FAERS Safety Report 6929580-9 (Version None)
Quarter: 2010Q3

REPORT INFORMATION
  Report Type: 
  Country: None (occurrence: None)
  Receive Date: 20100818
  Receipt Date: 20100723
  Transmission Date: 20110219
  Serious: Yes (Other)
  Sender: FDA-Public Use
  Company Number: US-BAYER-201013994NA

PATIENT
  Age: 26 Year
  Sex: Female
  Weight: 68 kg

DRUGS (11)
  1. YAZ [Suspect]
     Indication: ACNE
     Route: 048
     Dates: start: 20071201, end: 20080401
  2. YAZ [Suspect]
     Route: 048
     Dates: start: 20081001, end: 20090601
  3. YASMIN [Suspect]
     Indication: POLYCYSTIC OVARIES
     Route: 048
     Dates: start: 20060901, end: 20071101
  4. DROSPIRENONE AND EHTINYL ESTRADIOL [Suspect]
     Indication: POLYCYSTIC OVARIES
     Route: 048
     Dates: start: 20090701, end: 20090801
  5. CIPRODEX [Concomitant]
     Dates: start: 20080501
  6. CLINDAMYCIN [Concomitant]
     Dates: start: 20080801
  7. DOXYCYCLINE [Concomitant]
     Dates: start: 20080401, end: 20081001
  8. DIFFERIN [Concomitant]
     Indication: ACNE
     Dates: start: 20080101, end: 20090901
  9. DIFFERIN [Concomitant]
     Dates: start: 20091101
  10. CLOMIPHENE CITRATE [Concomitant]
     Indication: INFERTILITY
     Dates: start: 20080501, end: 20081101
  11. GABAPENTIN [Concomitant]
     Indication: MIGRAINE
     Dates: start: 20090501, end: 20100101

REACTIONS (2)
  - HEADACHE [None]
  - TRANSIENT ISCHAEMIC ATTACK [None]
